FAERS Safety Report 21149683 (Version 1)
Quarter: 2022Q3

REPORT INFORMATION
  Report Type: Spontaneous
  Country: IL (occurrence: IL)
  Receive Date: 20220729
  Receipt Date: 20220729
  Transmission Date: 20221027
  Serious: Yes (Death)
  Sender: FDA-Public Use
  Company Number: IL-Eisai Medical Research-EC-2022-120067

PATIENT
  Sex: Female

DRUGS (1)
  1. HALAVEN [Suspect]
     Active Substance: ERIBULIN MESYLATE
     Indication: Triple negative breast cancer
     Dosage: DOSE UNKNOWN
     Route: 042

REACTIONS (1)
  - Death [Fatal]
